FAERS Safety Report 8073765-8 (Version None)
Quarter: 2012Q1

REPORT INFORMATION
  Report Type: 
  Country: None (occurrence: None)
  Receive Date: 20120126
  Receipt Date: 20120124
  Transmission Date: 20120608
  Serious: Yes (Death, Hospitalization)
  Sender: FDA-Public Use
  Company Number: US-B.I. PHARMACEUTICALS,INC./RIDGEFIELD-2011-BP-27956BP

PATIENT
  Sex: Male
  Weight: 88 kg

DRUGS (7)
  1. VITAMIN B-12 [Concomitant]
  2. POTASSIUM CHLORIDE [Concomitant]
     Dosage: 20 MEQ
     Route: 048
  3. DILTIAZEM HCL [Concomitant]
     Dosage: 120 MG
  4. PRADAXA [Suspect]
     Indication: ATRIAL FIBRILLATION
     Dosage: 300 MG
     Route: 048
     Dates: start: 20101209
  5. FISH OIL [Concomitant]
  6. LASIX [Concomitant]
     Dosage: 60 MG
  7. MULTI-VITAMIN [Concomitant]

REACTIONS (3)
  - COMA [None]
  - HAEMORRHAGE INTRACRANIAL [None]
  - HEADACHE [None]
